FAERS Safety Report 9390986 (Version 1)
Quarter: 2013Q3

REPORT INFORMATION
  Report Type: Spontaneous
  Country: US (occurrence: None)
  Receive Date: 20130705
  Receipt Date: 20130705
  Transmission Date: 20140515
  Serious: Yes (Other)
  Sender: FDA-Public Use
  Company Number: None

PATIENT
  Age: 32 Year
  Sex: Male
  Weight: 96.62 kg

DRUGS (1)
  1. AMPHETAMINE [Suspect]
     Indication: ATTENTION DEFICIT/HYPERACTIVITY DISORDER
     Dosage: 1 CAPSULE
     Route: 048
     Dates: start: 20130215, end: 20130704

REACTIONS (5)
  - Product substitution issue [None]
  - Fatigue [None]
  - Anxiety [None]
  - Agitation [None]
  - Disturbance in attention [None]
